FAERS Safety Report 22839870 (Version 4)
Quarter: 2024Q2

REPORT INFORMATION
  Report Type: Spontaneous
  Country: CA (occurrence: CA)
  Receive Date: 20230818
  Receipt Date: 20240509
  Transmission Date: 20240716
  Serious: Yes (Life-Threatening, Other)
  Sender: FDA-Public Use
  Company Number: CA-MYLANLABS-2023M1086263

PATIENT
  Age: 7 Year
  Sex: Male
  Weight: 19.05 kg

DRUGS (1)
  1. EPIPEN JR [Suspect]
     Active Substance: EPINEPHRINE
     Indication: Anaphylactic reaction
     Dosage: 0.15 MILLIGRAM, QD (FREQUENCY: 1)
     Route: 030
     Dates: start: 20230810

REACTIONS (3)
  - Injection site pain [Recovered/Resolved]
  - Device failure [Recovered/Resolved]
  - Needle issue [Recovered/Resolved]

NARRATIVE: CASE EVENT DATE: 20230810
